FAERS Safety Report 17257713 (Version 1)
Quarter: 2020Q1

REPORT INFORMATION
  Report Type: Spontaneous
  Country: DE (occurrence: DE)
  Receive Date: 20200110
  Receipt Date: 20200110
  Transmission Date: 20200409
  Serious: Yes (Congenital Anomaly)
  Sender: FDA-Public Use
  Company Number: DE-TEVA-2020-DE-1165181

PATIENT
  Age: 1 Day
  Sex: Male
  Weight: 3.82 kg

DRUGS (2)
  1. LAMOTRIGINE. [Suspect]
     Active Substance: LAMOTRIGINE
     Indication: EPILEPSY
     Dosage: 400 [MG/D (2 X 200 MG/D) ] 2 SEPARATED DOSES
     Route: 064
     Dates: start: 20180121, end: 20181106
  2. MINPROSTIN [Concomitant]
     Active Substance: DINOPROSTONE
     Indication: LABOUR INDUCTION
     Route: 064
     Dates: start: 20181105, end: 20181105

REACTIONS (3)
  - Atrial septal defect [Not Recovered/Not Resolved]
  - Foetal exposure during pregnancy [Unknown]
  - Anomaly of external ear congenital [Not Recovered/Not Resolved]

NARRATIVE: CASE EVENT DATE: 20181106
